APPROVED DRUG PRODUCT: TACROLIMUS
Active Ingredient: TACROLIMUS
Strength: 0.03%
Dosage Form/Route: OINTMENT;TOPICAL
Application: A210393 | Product #002 | TE Code: AB
Applicant: GLENMARK PHARMACEUTICALS LTD
Approved: Aug 16, 2023 | RLD: No | RS: No | Type: RX